FAERS Safety Report 8108594-X (Version None)
Quarter: 2012Q1

REPORT INFORMATION
  Report Type: 
  Country: None (occurrence: None)
  Receive Date: 20120202
  Receipt Date: 20120112
  Transmission Date: 20120608
  Serious: No
  Sender: FDA-Public Use
  Company Number: US-AMGEN-USASP2012002407

PATIENT
  Age: 59 Year
  Sex: Female

DRUGS (1)
  1. ENBREL [Suspect]
     Indication: RHEUMATOID ARTHRITIS
     Dosage: 50 MG, QWK
     Dates: start: 20111129

REACTIONS (6)
  - INJECTION SITE ERYTHEMA [None]
  - DENTAL FISTULA [None]
  - GINGIVAL PAIN [None]
  - TOOTH ABSCESS [None]
  - INJECTION SITE INDURATION [None]
  - INJECTION SITE HAEMATOMA [None]
